FAERS Safety Report 7239464-7 (Version None)
Quarter: 2011Q1

REPORT INFORMATION
  Report Type: 
  Country: None (occurrence: None)
  Receive Date: 20110121
  Receipt Date: 20110119
  Transmission Date: 20110831
  Serious: Yes (Congenital Anomaly, Other)
  Sender: FDA-Public Use
  Company Number: CA-ABBOTT-10P-028-0661826-00

PATIENT
  Sex: Male
  Weight: 3.66 kg

DRUGS (3)
  1. REYATAZ [Suspect]
     Indication: DRUG EXPOSURE DURING PREGNANCY
     Route: 064
  2. EPZICOM [Suspect]
     Indication: DRUG EXPOSURE DURING PREGNANCY
     Route: 064
  3. NORVIR [Suspect]
     Indication: DRUG EXPOSURE DURING PREGNANCY
     Route: 064

REACTIONS (19)
  - PHALANGEAL AGENESIS [None]
  - HIGH ARCHED PALATE [None]
  - PILONIDAL CYST CONGENITAL [None]
  - CONGENITAL BOWING OF LONG BONES [None]
  - HYPERBILIRUBINAEMIA [None]
  - FEEDING DISORDER NEONATAL [None]
  - EYE DISCHARGE [None]
  - VOMITING [None]
  - GASTROOESOPHAGEAL REFLUX DISEASE [None]
  - DRUG EXPOSURE DURING PREGNANCY [None]
  - LIMB HYPOPLASIA CONGENITAL [None]
  - SKELETON DYSPLASIA [None]
  - PENILE SIZE REDUCED [None]
  - RHINORRHOEA [None]
  - TACHYPNOEA [None]
  - CHONDRODYSTROPHY [None]
  - FINGER HYPOPLASIA [None]
  - LIMB MALFORMATION [None]
  - HAND DEFORMITY [None]
